FAERS Safety Report 6155175-3 (Version None)
Quarter: 2009Q2

REPORT INFORMATION
  Report Type: 
  Country: None (occurrence: None)
  Receive Date: 20090415
  Receipt Date: 20070706
  Transmission Date: 20091009
  Serious: Yes (Other)
  Sender: FDA-Public Use
  Company Number: US-ASTRAZENECA-2006UW24790

PATIENT
  Age: 14432 Day
  Sex: Male
  Weight: 103 kg

DRUGS (41)
  1. SEROQUEL [Suspect]
     Indication: MENTAL DISORDER
     Route: 048
     Dates: start: 20010606
  2. SEROQUEL [Suspect]
     Indication: PSYCHOTIC DISORDER
     Route: 048
     Dates: start: 20010606
  3. SEROQUEL [Suspect]
     Indication: AGITATION
     Route: 048
     Dates: start: 20010606
  4. SEROQUEL [Suspect]
     Dosage: 25 MG-800 MG
     Route: 048
  5. SEROQUEL [Suspect]
     Dosage: 25 MG-800 MG
     Route: 048
  6. SEROQUEL [Suspect]
     Dosage: 25 MG-800 MG
     Route: 048
  7. GEODON [Concomitant]
  8. THORAZINE [Concomitant]
     Dates: start: 19880101, end: 19890101
  9. ZYPREXA [Concomitant]
  10. KETOCONAZOLE [Concomitant]
  11. METFORMIN HCL [Concomitant]
  12. ENALAPRIL [Concomitant]
  13. LOVASTATIN [Concomitant]
  14. GLYBURIDE [Concomitant]
  15. HYDROCHLOROTHIAZIDE [Concomitant]
  16. OMEPRAZOLE [Concomitant]
  17. XALATAN [Concomitant]
  18. TIMOLOL MALEATE [Concomitant]
  19. IBUPROFEN [Concomitant]
  20. ALLOPURINOL [Concomitant]
  21. ASPIRIN [Concomitant]
  22. TRIAMTERENE [Concomitant]
  23. ISONIAZID [Concomitant]
  24. VITAMIN B6 [Concomitant]
  25. HUMULIN R [Concomitant]
  26. DIPHENHYDRAMINE HCL [Concomitant]
  27. SERTRALINE HCL [Concomitant]
  28. HYDROXYZINE [Concomitant]
  29. DOXEPIN HCL [Concomitant]
  30. LATANOPROST [Concomitant]
  31. OLANZAPINE [Concomitant]
  32. MILK OF MAGNESIA [Concomitant]
  33. ZIPRASIDONE HCL [Concomitant]
  34. RISPERDAL [Concomitant]
  35. ZOLOFT [Concomitant]
  36. COLACE [Concomitant]
  37. HYDROCORTISONE [Concomitant]
  38. DIABETA [Concomitant]
  39. KEPPRA [Concomitant]
  40. BENADRYL [Concomitant]
  41. VISTARIL [Concomitant]

REACTIONS (14)
  - CHEST PAIN [None]
  - DIABETES MELLITUS [None]
  - DRY SKIN [None]
  - DYSPEPSIA [None]
  - DYSPNOEA [None]
  - FOOT DEFORMITY [None]
  - GLAUCOMA [None]
  - HYPOAESTHESIA [None]
  - IRRITABILITY [None]
  - MUSCULOSKELETAL CHEST PAIN [None]
  - OCULAR HYPERTENSION [None]
  - PARAESTHESIA [None]
  - SUICIDE ATTEMPT [None]
  - THYROGLOSSAL CYST [None]
